FAERS Safety Report 4803270-0 (Version None)
Quarter: 2005Q4

REPORT INFORMATION
  Report Type: 
  Country: None (occurrence: None)
  Receive Date: 20051013
  Receipt Date: 20050922
  Transmission Date: 20060501
  Serious: Yes (Death)
  Sender: FDA-Public Use
  Company Number: US_0509122432

PATIENT
  Sex: 0

DRUGS (1)
  1. ZYPREXA [Suspect]
     Dates: start: 20001001, end: 20020201

REACTIONS (1)
  - DEATH [None]
